FAERS Safety Report 7481990-X (Version None)
Quarter: 2011Q2

REPORT INFORMATION
  Report Type: 
  Country: None (occurrence: None)
  Receive Date: 20110516
  Receipt Date: 20110506
  Transmission Date: 20111010
  Serious: Yes (Hospitalization)
  Sender: FDA-Public Use
  Company Number: DE-ABBOTT-11P-062-0725171-00

PATIENT
  Age: 29 Year
  Sex: Female

DRUGS (2)
  1. TRENANTONE [Suspect]
     Indication: OVARIAN DISORDER
  2. TRENANTONE [Suspect]
     Indication: PROPHYLAXIS
     Route: 058
     Dates: start: 20110301

REACTIONS (1)
  - CONSTIPATION [None]
